FAERS Safety Report 19836951 (Version 6)
Quarter: 2021Q4

REPORT INFORMATION
  Report Type: Spontaneous
  Country: PT (occurrence: PT)
  Receive Date: 20210914
  Receipt Date: 20211110
  Transmission Date: 20220303
  Serious: Yes (Disabling, Other)
  Sender: FDA-Public Use
  Company Number: PT-009507513-2012PRT005850

PATIENT
  Age: 41 Year
  Sex: Female

DRUGS (1)
  1. ETONOGESTREL [Suspect]
     Active Substance: ETONOGESTREL
     Dosage: 1 IMPLANT ON THE LEFT ARM
     Dates: start: 20171025, end: 20210119

REACTIONS (13)
  - Surgery [Unknown]
  - Muscle atrophy [Unknown]
  - Neuroma [Unknown]
  - Device issue [Recovered/Resolved]
  - Hypokinesia [Unknown]
  - Device deployment issue [Recovered/Resolved]
  - Complication associated with device [Recovered/Resolved]
  - Complication of device removal [Recovered/Resolved]
  - Scar [Unknown]
  - Asthenia [Unknown]
  - Hypoaesthesia [Not Recovered/Not Resolved]
  - Complication of device removal [Unknown]
  - Incorrect product administration duration [Unknown]

NARRATIVE: CASE EVENT DATE: 20171025
